FAERS Safety Report 7952719-3 (Version None)
Quarter: 2011Q4

REPORT INFORMATION
  Report Type: 
  Country: None (occurrence: None)
  Receive Date: 20111201
  Receipt Date: 20111123
  Transmission Date: 20120403
  Serious: Yes (Other)
  Sender: FDA-Public Use
  Company Number: US-BAYER-2011-114017

PATIENT
  Age: 28 Year
  Sex: Female

DRUGS (5)
  1. SINGULAIR [Concomitant]
  2. ADDERALL 5 [Concomitant]
  3. ALLEGRA [Concomitant]
  4. AVELOX [Suspect]
     Dosage: 400 MG PER DAY
     Route: 048
     Dates: start: 20111109, end: 20111109
  5. ADVAIR DISKUS 100/50 [Concomitant]

REACTIONS (6)
  - PRURITUS [None]
  - TREMOR [None]
  - RASH [None]
  - EYELID OEDEMA [None]
  - DYSPNOEA [None]
  - ANAPHYLACTIC REACTION [None]
